FAERS Safety Report 10676233 (Version 1)
Quarter: 2014Q4

REPORT INFORMATION
  Report Type: Spontaneous
  Country: CN (occurrence: CN)
  Receive Date: 20141226
  Receipt Date: 20141226
  Transmission Date: 20150529
  Serious: Yes (Other)
  Sender: FDA-Public Use
  Company Number: CN-009507513-1412CHN011319

PATIENT
  Sex: Female

DRUGS (2)
  1. MARVELON [Suspect]
     Active Substance: DESOGESTREL\ETHINYL ESTRADIOL
     Dosage: RESTARTED AFTER ABORTION WHEN HER MENSTRUATION COMES
     Route: 048
  2. MARVELON [Suspect]
     Active Substance: DESOGESTREL\ETHINYL ESTRADIOL
     Dosage: UNK
     Route: 048

REACTIONS (5)
  - Coital bleeding [Unknown]
  - Uterine haemorrhage [Unknown]
  - Metrorrhagia [Unknown]
  - Abortion [Unknown]
  - Unintended pregnancy [Recovered/Resolved]
